FAERS Safety Report 6384220-5 (Version None)
Quarter: 2009Q4

REPORT INFORMATION
  Report Type: 
  Country: None (occurrence: None)
  Receive Date: 20091001
  Receipt Date: 20090923
  Transmission Date: 20100525
  Serious: Yes (Other)
  Sender: FDA-Public Use
  Company Number: B0594578A

PATIENT
  Sex: Female

DRUGS (2)
  1. ZANAMIVIR [Suspect]
     Indication: INFLUENZA
     Dosage: 600MG UNKNOWN
     Route: 042
     Dates: start: 20090918
  2. HYDROCORTISON [Concomitant]
     Dosage: 50MG UNKNOWN
     Route: 042
     Dates: start: 20090917

REACTIONS (3)
  - BRADYCARDIA [None]
  - CARDIAC ARREST [None]
  - SINUS ARREST [None]
